FAERS Safety Report 5189404-X (Version None)
Quarter: 2006Q4

REPORT INFORMATION
  Report Type: 
  Country: None (occurrence: None)
  Receive Date: 20061215
  Receipt Date: 20061204
  Transmission Date: 20070319
  Serious: Yes (Hospitalization, Other)
  Sender: FDA-Public Use
  Company Number: 2005114609

PATIENT
  Age: 45 Year
  Sex: Male

DRUGS (5)
  1. NEURONTIN [Suspect]
     Indication: PAIN
     Dosage: 900 MG (300 MG, 3 IN 1 D), ORAL
     Route: 048
  2. LORTAB [Suspect]
     Indication: PAIN
     Dosage: ORAL
     Route: 048
  3. LISINOPRIL AND HYDROCHLOROTHIAZIDE [Suspect]
     Indication: HYPERTENSION
     Dosage: 1 IN 1 D, ORAL
     Route: 048
  4. ERYTHROMYCIN [Concomitant]
  5. TEMAZEPAM [Concomitant]

REACTIONS (8)
  - CHEST INJURY [None]
  - DRUG INEFFECTIVE [None]
  - INTENTIONAL SELF-INJURY [None]
  - JOINT INJURY [None]
  - NECK INJURY [None]
  - POLYTRAUMATISM [None]
  - SUICIDE ATTEMPT [None]
  - WOUND [None]
